FAERS Safety Report 22263318 (Version 2)
Quarter: 2023Q2

REPORT INFORMATION
  Report Type: Spontaneous
  Country: US (occurrence: US)
  Receive Date: 20230428
  Receipt Date: 20230526
  Transmission Date: 20230722
  Serious: Yes (Hospitalization, Other)
  Sender: FDA-Public Use
  Company Number: US-PIRAMAL CRITICAL CARE LIMITED-2023-PEL-000216

PATIENT

DRUGS (1)
  1. GABLOFEN [Suspect]
     Active Substance: BACLOFEN
     Indication: Product used for unknown indication
     Dosage: 125 MCG/DAY
     Route: 037

REACTIONS (8)
  - Supraventricular tachycardia [Unknown]
  - Erythema [Unknown]
  - Incision site swelling [Unknown]
  - Urinary tract infection [Unknown]
  - Implant site extravasation [Unknown]
  - Cellulitis [Unknown]
  - Sepsis [Unknown]
  - Hypotension [Unknown]

NARRATIVE: CASE EVENT DATE: 20230301
